FAERS Safety Report 21967790 (Version 2)
Quarter: 2023Q1

REPORT INFORMATION
  Report Type: Report from Study
  Country: IT (occurrence: IT)
  Receive Date: 20230208
  Receipt Date: 20230224
  Transmission Date: 20230417
  Serious: Yes (Hospitalization, Other)
  Sender: FDA-Public Use
  Company Number: None

PATIENT

DRUGS (5)
  1. PEGASPARGASE [Suspect]
     Active Substance: PEGASPARGASE
     Indication: Acute lymphocytic leukaemia
     Dosage: 1690 U/L
     Route: 042
     Dates: start: 20221227, end: 20221227
  2. THIOGUANINE ANHYDROUS [Suspect]
     Active Substance: THIOGUANINE ANHYDROUS
     Indication: Acute lymphocytic leukaemia
     Dosage: 40 MG (1 CPR) /DAY FROM 30/01/23, SUSPENDED ON 11/02/23
     Route: 065
     Dates: start: 20230130, end: 20230211
  3. VINCRISTINE [Suspect]
     Active Substance: VINCRISTINE
     Indication: Acute lymphocytic leukaemia
     Dosage: 1 MG/DAY ON 27/12, 02, 09/01/23
     Route: 042
     Dates: start: 20221227, end: 20230123
  4. CYTARABINE [Suspect]
     Active Substance: CYTARABINE
     Indication: Acute lymphocytic leukaemia
     Dosage: 50,50 MG/DAY FROM 01/02 TO 04/02/23, FROM 08/02 TO 10/02/23
     Route: 065
     Dates: start: 20230201, end: 20230210
  5. CYCLOPHOSPHAMIDE [Suspect]
     Active Substance: CYCLOPHOSPHAMIDE
     Indication: Acute lymphocytic leukaemia
     Dosage: 667 MG/DAY
     Route: 065
     Dates: start: 20230130, end: 20230130

REACTIONS (4)
  - Febrile neutropenia [Not Recovered/Not Resolved]
  - Pancytopenia [Recovering/Resolving]
  - Stomatitis [Recovering/Resolving]
  - Anaemia [Not Recovered/Not Resolved]

NARRATIVE: CASE EVENT DATE: 20230109
